FAERS Safety Report 4467673-9 (Version None)
Quarter: 2004Q4

REPORT INFORMATION
  Report Type: 
  Country: None (occurrence: None)
  Receive Date: 20041005
  Receipt Date: 20040902
  Transmission Date: 20050328
  Serious: Yes (Death)
  Sender: FDA-Public Use
  Company Number: 2004S1002641

PATIENT
  Age: 28 Year
  Sex: Male

DRUGS (4)
  1. CLOZAPINE [Suspect]
     Indication: SCHIZOPHRENIA
     Dosage: 200 MG Q HS, ORAL
     Route: 048
  2. ZOLPIDEM TARTRATE [Concomitant]
  3. PAROXETINE CR [Concomitant]
  4. ARIPIPRAZOLE [Concomitant]

REACTIONS (2)
  - FOOD POISONING [None]
  - MULTI-ORGAN FAILURE [None]
